FAERS Safety Report 5556547-8 (Version None)
Quarter: 2007Q4

REPORT INFORMATION
  Report Type: 
  Country: None (occurrence: None)
  Receive Date: 20071130
  Receipt Date: 20070821
  Transmission Date: 20080405
  Serious: No
  Sender: FDA-Public Use
  Company Number: US200708004712

PATIENT
  Age: 46 Year
  Sex: Female
  Weight: 103.9 kg

DRUGS (3)
  1. BYETTA [Suspect]
     Indication: TYPE 2 DIABETES MELLITUS
     Dosage: 5 UG, 2/D, SUBCUTANEOUS ; 5 UG, 2/D, SUBCUTANEOUS
     Route: 058
     Dates: start: 20060101, end: 20060101
  2. BYETTA [Suspect]
     Indication: TYPE 2 DIABETES MELLITUS
     Dosage: 5 UG, 2/D, SUBCUTANEOUS ; 5 UG, 2/D, SUBCUTANEOUS
     Route: 058
     Dates: start: 20070701
  3. GLUCOPHAGE [Concomitant]

REACTIONS (11)
  - BLOOD GLUCOSE INCREASED [None]
  - EYE SWELLING [None]
  - GLYCOSYLATED HAEMOGLOBIN INCREASED [None]
  - INJECTION SITE ERYTHEMA [None]
  - INJECTION SITE PAIN [None]
  - INJECTION SITE PRURITUS [None]
  - OEDEMA PERIPHERAL [None]
  - PRURITUS [None]
  - SKIN LESION [None]
  - URTICARIA [None]
  - WEIGHT DECREASED [None]
